FAERS Safety Report 18728306 (Version 2)
Quarter: 2021Q1

REPORT INFORMATION
  Report Type: Spontaneous
  Country: CA (occurrence: CA)
  Receive Date: 20210111
  Receipt Date: 20210204
  Transmission Date: 20210419
  Serious: Yes (Other)
  Sender: FDA-Public Use
  Company Number: CA-JNJFOC-20210112794

PATIENT
  Age: 56 Year
  Sex: Female

DRUGS (10)
  1. METHOTREXATE. [Concomitant]
     Active Substance: METHOTREXATE
     Route: 058
  2. CLOPIDOGREL BISULFATE. [Concomitant]
     Active Substance: CLOPIDOGREL BISULFATE
     Route: 065
  3. REMICADE [Suspect]
     Active Substance: INFLIXIMAB
     Indication: CROHN^S DISEASE
     Route: 042
  4. ACETAMINOPHEN. [Concomitant]
     Active Substance: ACETAMINOPHEN
     Indication: PREMEDICATION
     Route: 065
  5. TYLENOL [Concomitant]
     Active Substance: ACETAMINOPHEN
     Route: 065
  6. REMICADE [Suspect]
     Active Substance: INFLIXIMAB
     Dosage: CYCLICAL
     Route: 042
  7. HYDROCORTISONE. [Concomitant]
     Active Substance: HYDROCORTISONE
     Indication: PREMEDICATION
     Route: 065
  8. IRON [Concomitant]
     Active Substance: IRON
     Route: 065
  9. ASA [Concomitant]
     Active Substance: ASPIRIN
     Route: 065
  10. METFORMIN [Concomitant]
     Active Substance: METFORMIN HYDROCHLORIDE
     Route: 065

REACTIONS (4)
  - Condition aggravated [Unknown]
  - Mucous stools [Unknown]
  - Off label use [Unknown]
  - Haematochezia [Unknown]
